FAERS Safety Report 7402950-0 (Version None)
Quarter: 2011Q1

REPORT INFORMATION
  Report Type: 
  Country: None (occurrence: None)
  Receive Date: 20110331
  Receipt Date: 20110322
  Transmission Date: 20110831
  Serious: Yes (Other)
  Sender: FDA-Public Use
  Company Number: JPI-P-014312

PATIENT
  Sex: Female
  Weight: 60.782 kg

DRUGS (8)
  1. AMLODIPINE [Concomitant]
  2. XYREM [Suspect]
     Indication: INSOMNIA
     Dosage: 1.5 GM (0.75 GM,2 IN 1 D),ORAL,  4.5 GM (2.25 GM,2 IN 1 D), ORAL,  9 GM (4.5 GM,2 IN 1 D), ORAL
     Route: 048
     Dates: start: 20070403
  3. XYREM [Suspect]
     Indication: SLEEP DISORDER
     Dosage: 1.5 GM (0.75 GM,2 IN 1 D),ORAL,  4.5 GM (2.25 GM,2 IN 1 D), ORAL,  9 GM (4.5 GM,2 IN 1 D), ORAL
     Route: 048
     Dates: start: 20070403
  4. XYREM [Suspect]
     Indication: INSOMNIA
     Dosage: 1.5 GM (0.75 GM,2 IN 1 D),ORAL,  4.5 GM (2.25 GM,2 IN 1 D), ORAL,  9 GM (4.5 GM,2 IN 1 D), ORAL
     Route: 048
     Dates: start: 20080215
  5. XYREM [Suspect]
     Indication: SLEEP DISORDER
     Dosage: 1.5 GM (0.75 GM,2 IN 1 D),ORAL,  4.5 GM (2.25 GM,2 IN 1 D), ORAL,  9 GM (4.5 GM,2 IN 1 D), ORAL
     Route: 048
     Dates: start: 20080215
  6. FUMARATE [Concomitant]
  7. FENOFIBRATE [Concomitant]
  8. QUETIAPINE [Concomitant]

REACTIONS (12)
  - TINNITUS [None]
  - CRYING [None]
  - GASTROOESOPHAGEAL REFLUX DISEASE [None]
  - HYPERHIDROSIS [None]
  - COLD SWEAT [None]
  - SOMNAMBULISM [None]
  - EAR DISCOMFORT [None]
  - RENAL IMPAIRMENT [None]
  - RASH [None]
  - ASTHENIA [None]
  - PRURITUS [None]
  - TREMOR [None]
